FAERS Safety Report 23716911 (Version 1)
Quarter: 2024Q2

REPORT INFORMATION
  Report Type: Spontaneous
  Country: US (occurrence: US)
  Receive Date: 20240408
  Receipt Date: 20240408
  Transmission Date: 20240716
  Serious: Yes (Other)
  Sender: FDA-Public Use
  Company Number: US-VIIV HEALTHCARE LIMITED-US2024041180

PATIENT

DRUGS (4)
  1. DOVATO [Suspect]
     Active Substance: DOLUTEGRAVIR SODIUM\LAMIVUDINE
     Indication: HIV infection
     Dosage: 1 DF, QD
     Route: 048
  2. SKYRIZI [Suspect]
     Active Substance: RISANKIZUMAB-RZAA
     Indication: HIV infection
     Dosage: 150 MG/ML
     Route: 058
  3. MOUNJARO [Suspect]
     Active Substance: TIRZEPATIDE
     Indication: HIV infection
     Dosage: UNK UNK, WE 15MG/0.5ML BELOW SKIN WEEKLY. AUTOINJECTOR
     Route: 058
  4. XANAX [Suspect]
     Active Substance: ALPRAZOLAM
     Indication: HIV infection
     Dosage: 1 DF, QD
     Route: 048

REACTIONS (1)
  - Syphilis [Unknown]
